FAERS Safety Report 15179833 (Version 12)
Quarter: 2020Q2

REPORT INFORMATION
  Report Type: Report from Study
  Country: BR (occurrence: BR)
  Receive Date: 20180723
  Receipt Date: 20200622
  Transmission Date: 20200713
  Serious: Yes (Other)
  Sender: FDA-Public Use
  Company Number: BR-ROCHE-2138383

PATIENT
  Age: 39 Year
  Sex: Female
  Weight: 59 kg

DRUGS (15)
  1. SERTRALINE [Concomitant]
     Active Substance: SERTRALINE HYDROCHLORIDE
     Indication: ANXIETY
     Dosage: 1 DF, QD (USING FOR 15 DAYS)
     Route: 048
  2. RIVOTRIL [Concomitant]
     Active Substance: CLONAZEPAM
     Indication: ANXIETY
     Route: 048
  3. XOLAIR [Suspect]
     Active Substance: OMALIZUMAB
     Route: 058
     Dates: start: 20180621
  4. ALLEGRA [Concomitant]
     Active Substance: FEXOFENADINE HYDROCHLORIDE
     Route: 065
  5. SERTRALINE [Concomitant]
     Active Substance: SERTRALINE HYDROCHLORIDE
     Indication: DISTURBANCE IN ATTENTION
     Route: 065
  6. RIVOTRIL [Concomitant]
     Active Substance: CLONAZEPAM
     Indication: URTICARIA
     Dosage: (USING FOR 14 YEARS)
     Route: 048
  7. ALLEGRA [Concomitant]
     Active Substance: FEXOFENADINE HYDROCHLORIDE
     Indication: PRODUCT USED FOR UNKNOWN INDICATION
     Route: 065
  8. XOLAIR [Suspect]
     Active Substance: OMALIZUMAB
     Route: 058
     Dates: start: 20190311
  9. XOLAIR [Suspect]
     Active Substance: OMALIZUMAB
     Indication: URTICARIA PRESSURE
     Route: 058
     Dates: start: 20180520
  10. XOLAIR [Suspect]
     Active Substance: OMALIZUMAB
     Route: 058
     Dates: start: 20191128
  11. XOLAIR [Suspect]
     Active Substance: OMALIZUMAB
     Indication: URTICARIA
     Route: 058
     Dates: start: 20180513
  12. XOLAIR [Suspect]
     Active Substance: OMALIZUMAB
     Route: 058
     Dates: start: 20180720
  13. FENERGAN [PROMETHAZINE] [Concomitant]
     Active Substance: PROMETHAZINE HYDROCHLORIDE
     Indication: PRODUCT USED FOR UNKNOWN INDICATION
     Route: 065
  14. XOLAIR [Suspect]
     Active Substance: OMALIZUMAB
     Route: 058
     Dates: start: 201805
  15. XOLAIR [Suspect]
     Active Substance: OMALIZUMAB
     Route: 058
     Dates: start: 20190121

REACTIONS (36)
  - Tremor [Recovering/Resolving]
  - Nervousness [Unknown]
  - Dyspnoea [Not Recovered/Not Resolved]
  - Head discomfort [Recovering/Resolving]
  - Hypersensitivity [Unknown]
  - Urticaria [Recovered/Resolved]
  - Sluggishness [Not Recovered/Not Resolved]
  - Headache [Not Recovered/Not Resolved]
  - Dysphonia [Recovering/Resolving]
  - Pneumonia [Unknown]
  - Pulmonary congestion [Unknown]
  - Fear [Unknown]
  - Daydreaming [Recovering/Resolving]
  - Immunodeficiency [Not Recovered/Not Resolved]
  - Pruritus [Unknown]
  - Hair texture abnormal [Not Recovered/Not Resolved]
  - Influenza [Recovering/Resolving]
  - Nausea [Not Recovered/Not Resolved]
  - Dizziness [Recovering/Resolving]
  - Onychomalacia [Not Recovered/Not Resolved]
  - Sensitivity to weather change [Not Recovered/Not Resolved]
  - Urticaria [Recovered/Resolved]
  - Diarrhoea [Recovering/Resolving]
  - Eye swelling [Recovering/Resolving]
  - Oedema [Unknown]
  - Swelling [Unknown]
  - Paraesthesia oral [Recovering/Resolving]
  - Amnesia [Recovering/Resolving]
  - Neck pain [Unknown]
  - Tremor [Recovered/Resolved]
  - Thinking abnormal [Recovering/Resolving]
  - Headache [Recovered/Resolved]
  - Disturbance in attention [Not Recovered/Not Resolved]
  - Feeling of despair [Unknown]
  - Secretion discharge [Recovering/Resolving]
  - Abdominal discomfort [Recovering/Resolving]

NARRATIVE: CASE EVENT DATE: 20180523
